APPROVED DRUG PRODUCT: HYDROCHLOROTHIAZIDE
Active Ingredient: HYDROCHLOROTHIAZIDE
Strength: 12.5MG
Dosage Form/Route: CAPSULE;ORAL
Application: A078164 | Product #001 | TE Code: AB
Applicant: AUROBINDO PHARMA LTD
Approved: Sep 18, 2007 | RLD: No | RS: No | Type: RX